FAERS Safety Report 10797584 (Version 1)
Quarter: 2015Q1

REPORT INFORMATION
  Report Type: Spontaneous
  Country: US (occurrence: US)
  Receive Date: 20150216
  Receipt Date: 20150216
  Transmission Date: 20150721
  Serious: No
  Sender: FDA-Public Use
  Company Number: US-ELI_LILLY_AND_COMPANY-US201502001915

PATIENT
  Sex: Male
  Weight: 111.11 kg

DRUGS (4)
  1. METFORMIN [Concomitant]
     Active Substance: METFORMIN HYDROCHLORIDE
  2. HUMALOG [Suspect]
     Active Substance: INSULIN LISPRO
     Indication: TYPE 2 DIABETES MELLITUS
     Dosage: 20 U, PRN
     Route: 065
     Dates: start: 2005
  3. VICTOZA [Concomitant]
     Active Substance: LIRAGLUTIDE
  4. GLYBURIDE. [Concomitant]
     Active Substance: GLYBURIDE
     Dosage: 2 DF, BID

REACTIONS (8)
  - Skin infection [Recovered/Resolved]
  - Gait disturbance [Unknown]
  - Glycosylated haemoglobin increased [Recovering/Resolving]
  - Drug dose omission [Unknown]
  - Weight decreased [Not Recovered/Not Resolved]
  - Incorrect product storage [Unknown]
  - Arthropathy [Unknown]
  - Meniscus injury [Unknown]

NARRATIVE: CASE EVENT DATE: 2009
